FAERS Safety Report 24463146 (Version 1)
Quarter: 2024Q4

REPORT INFORMATION
  Report Type: Report from Study
  Country: US (occurrence: US)
  Receive Date: 20241018
  Receipt Date: 20241018
  Transmission Date: 20250114
  Serious: No
  Sender: ROCHE
  Company Number: US-ROCHE-2787780

PATIENT
  Age: 74 Year
  Sex: Male
  Weight: 94.5 kg

DRUGS (4)
  1. XOLAIR [Suspect]
     Active Substance: OMALIZUMAB
     Indication: Asthma
     Dosage: LAST INJECTION DATE: 26/MAY/2024? FREQUENCY TEXT:16/JAN/2-024
     Route: 058
  2. XOLAIR [Suspect]
     Active Substance: OMALIZUMAB
     Indication: Chronic obstructive pulmonary disease
     Dosage: INJECT 150 MG BY SUBCUTANEOUS INJECTION EVERY 2 WEEKS (14 DAYS)
     Route: 058
     Dates: start: 20230105
  3. XOLAIR [Suspect]
     Active Substance: OMALIZUMAB
     Indication: Asthma
  4. XOLAIR [Suspect]
     Active Substance: OMALIZUMAB
     Indication: Seasonal allergy

REACTIONS (2)
  - Off label use [Unknown]
  - No adverse event [Unknown]
